FAERS Safety Report 4423917-0 (Version None)
Quarter: 2004Q3

REPORT INFORMATION
  Report Type: 
  Country: None (occurrence: None)
  Receive Date: 20040806
  Receipt Date: 20040729
  Transmission Date: 20050211
  Serious: Yes (Hospitalization)
  Sender: FDA-Public Use
  Company Number: K200401128

PATIENT
  Age: 77 Year
  Sex: Male

DRUGS (4)
  1. ALTACE [Suspect]
     Indication: HYPERTENSION
     Dosage: 2.5MG, QD, ORAL
     Route: 048
     Dates: start: 20040701, end: 20040713
  2. FOSAMAX [Concomitant]
  3. MULTIVITAMIN [Concomitant]
  4. METFORMIN HCL [Concomitant]

REACTIONS (4)
  - FEELING ABNORMAL [None]
  - HYPERKALAEMIA [None]
  - HYPONATRAEMIA [None]
  - VOMITING [None]
